FAERS Safety Report 6263566-5 (Version None)
Quarter: 2009Q3

REPORT INFORMATION
  Report Type: 
  Country: None (occurrence: None)
  Receive Date: 20090710
  Receipt Date: 20090422
  Transmission Date: 20100115
  Serious: No
  Sender: FDA-Public Use
  Company Number: A0781114A

PATIENT
  Age: 66 Year
  Sex: Female

DRUGS (1)
  1. TYKERB [Suspect]
     Indication: DRUG USE FOR UNKNOWN INDICATION
     Dosage: 5TAB PER DAY
     Route: 048
     Dates: start: 20090317

REACTIONS (5)
  - DIARRHOEA [None]
  - MYALGIA [None]
  - RASH [None]
  - SKIN DISCOLOURATION [None]
  - SKIN WRINKLING [None]
